FAERS Safety Report 21430040 (Version 1)
Quarter: 2022Q4

REPORT INFORMATION
  Report Type: Spontaneous
  Country: None (occurrence: GR)
  Receive Date: 20221009
  Receipt Date: 20221009
  Transmission Date: 20230113
  Serious: Yes (Other)
  Sender: FDA-Public Use
  Company Number: GR-Jiangsu Hengrui Medicine Co., Ltd.-2133609

PATIENT
  Sex: Female

DRUGS (12)
  1. CYCLOPHOSPHAMIDE [Suspect]
     Active Substance: CYCLOPHOSPHAMIDE
     Indication: Antineutrophil cytoplasmic antibody positive
  2. METHYLPREDNISOLONE [Suspect]
     Active Substance: METHYLPREDNISOLONE
  3. AMLODIPINE [Concomitant]
     Active Substance: AMLODIPINE BESYLATE
  4. METOPROLOL [Concomitant]
     Active Substance: METOPROLOL
  5. ALLOPURINOL [Concomitant]
     Active Substance: ALLOPURINOL
  6. ATORVASTATIN [Concomitant]
     Active Substance: ATORVASTATIN
  7. LEVOTHYROXINE [Concomitant]
     Active Substance: LEVOTHYROXINE
  8. RIVAROXABAN [Concomitant]
     Active Substance: RIVAROXABAN
  9. FOLIC ACID [Concomitant]
     Active Substance: FOLIC ACID
  10. OMEPRAZOLE [Concomitant]
     Active Substance: OMEPRAZOLE
  11. METFORMIN [Concomitant]
     Active Substance: METFORMIN HYDROCHLORIDE
  12. GLICLAZIDE [Concomitant]
     Active Substance: GLICLAZIDE

REACTIONS (2)
  - Lumbar vertebral fracture [Unknown]
  - Stomatitis [Recovered/Resolved]
